FAERS Safety Report 18326042 (Version 1)
Quarter: 2020Q3

REPORT INFORMATION
  Report Type: Spontaneous
  Country: GB (occurrence: GB)
  Receive Date: 20200929
  Receipt Date: 20200929
  Transmission Date: 20201103
  Serious: Yes (Life-Threatening, Other)
  Sender: FDA-Public Use
  Company Number: GB-AMGEN-GBRSP2020155067

PATIENT
  Age: 44 Year
  Sex: Male

DRUGS (4)
  1. CISPLATIN. [Concomitant]
     Active Substance: CISPLATIN
     Indication: EXTRAGONADAL PRIMARY GERM CELL TUMOUR
     Dosage: 70 MILLIGRAM/SQ. METER DAY 8, CYCLICAL
     Route: 042
     Dates: start: 2017
  2. GUADECITABINE [Concomitant]
     Active Substance: GUADECITABINE
     Indication: EXTRAGONADAL PRIMARY GERM CELL TUMOUR
     Dosage: 20 MILLIGRAM/SQ. METER, DAY 1?5, CYCLICAL
     Route: 058
     Dates: start: 2017
  3. FILGRASTIM [Suspect]
     Active Substance: FILGRASTIM
     Indication: PRODUCT USED FOR UNKNOWN INDICATION
     Dosage: 300 MICROGRAM DAYS 15 TO 21; Q21, CYCLICAL
     Route: 058
     Dates: start: 2017
  4. GEMCITABINE. [Concomitant]
     Active Substance: GEMCITABINE
     Indication: EXTRAGONADAL PRIMARY GERM CELL TUMOUR
     Dosage: 1000 MILLIGRAM/SQ. METER DAY 8 PLUS 15, CYCLICAL
     Route: 042
     Dates: start: 2017

REACTIONS (3)
  - Neutropenia [Unknown]
  - Thrombocytopenia [Unknown]
  - Germ cell cancer metastatic [Unknown]
